FAERS Safety Report 6556490-1 (Version None)
Quarter: 2010Q1

REPORT INFORMATION
  Report Type: 
  Country: None (occurrence: None)
  Receive Date: 20100128
  Receipt Date: 20100125
  Transmission Date: 20100710
  Serious: Yes (Other)
  Sender: FDA-Public Use
  Company Number: KR-PFIZER INC-2010009966

PATIENT
  Sex: Male

DRUGS (1)
  1. NEURONTIN [Suspect]
     Indication: TRIGEMINAL NEURALGIA
     Dosage: UNK
     Route: 048

REACTIONS (6)
  - ERECTILE DYSFUNCTION [None]
  - EYELID FUNCTION DISORDER [None]
  - HAEMATOLOGICAL MALIGNANCY [None]
  - PAIN [None]
  - VISUAL ACUITY REDUCED [None]
  - WEIGHT DECREASED [None]
